FAERS Safety Report 4588026-9 (Version None)
Quarter: 2005Q1

REPORT INFORMATION
  Report Type: 
  Country: None (occurrence: None)
  Receive Date: 20050216
  Receipt Date: 20050203
  Transmission Date: 20050727
  Serious: Yes (Other)
  Sender: FDA-Public Use
  Company Number: 2004115084

PATIENT
  Age: 18 Year
  Sex: Female

DRUGS (2)
  1. DEPO-PROVERA [Suspect]
     Indication: CONTRACEPTION
     Dosage: 150 MG (150 MG, SINGLE INJECTION), INTRAMUSCULAR
     Route: 030
     Dates: start: 20041209, end: 20041209
  2. EUGYNON (ETHINYLESTRADIOL, LEVONORGESTREL) [Concomitant]

REACTIONS (3)
  - SNEEZING [None]
  - URTICARIA GENERALISED [None]
  - WHEEZING [None]
